FAERS Safety Report 19404816 (Version 2)
Quarter: 2021Q3

REPORT INFORMATION
  Report Type: Spontaneous
  Country: US (occurrence: US)
  Receive Date: 20210611
  Receipt Date: 20210818
  Transmission Date: 20211014
  Serious: No
  Sender: FDA-Public Use
  Company Number: US-PFIZER INC-2021290894

PATIENT

DRUGS (1)
  1. TOVIAZ [Suspect]
     Active Substance: FESOTERODINE FUMARATE
     Dosage: 4 MG

REACTIONS (4)
  - Impaired driving ability [Unknown]
  - Gait disturbance [Unknown]
  - Dizziness [Unknown]
  - Mobility decreased [Unknown]
